FAERS Safety Report 5715945-X (Version None)
Quarter: 2008Q2

REPORT INFORMATION
  Report Type: 
  Country: None (occurrence: None)
  Receive Date: 20080424
  Receipt Date: 20080422
  Transmission Date: 20081010
  Serious: Yes (Hospitalization)
  Sender: FDA-Public Use
  Company Number: CN-ASTRAZENECA-2008AP02912

PATIENT
  Sex: Female

DRUGS (2)
  1. IRESSA [Suspect]
     Indication: LUNG ADENOCARCINOMA
     Route: 048
     Dates: start: 20080121, end: 20080126
  2. IRESSA [Suspect]
     Route: 048
     Dates: start: 20080401, end: 20080401

REACTIONS (1)
  - ATRIAL FIBRILLATION [None]
